FAERS Safety Report 9037145 (Version 1)
Quarter: 2013Q1

REPORT INFORMATION
  Report Type: Spontaneous
  Country: US (occurrence: None)
  Receive Date: 20130115
  Receipt Date: 20130115
  Transmission Date: 20140127
  Serious: Yes (Other)
  Sender: FDA-Public Use
  Company Number: TPA2012A08158

PATIENT
  Age: 84 Year
  Sex: Male
  Weight: 89.81 kg

DRUGS (6)
  1. ACTOS (PIOGLITAZONE HYDROCHLORIDE) [Suspect]
     Indication: TYPE 2 DIABETES MELLITUS
     Dates: start: 2007, end: 2010
  2. METFORMIN (METFORMIN) [Concomitant]
  3. AVANDIA (ROSIGLITAZONE MALEATE) [Concomitant]
  4. GLUCOPHAGE (METFORMIN HYDROCHLORIDE) [Concomitant]
  5. HUMALOG (INSULIN LISPRO) [Concomitant]
  6. LANTUS (INSULIN GLARGINE) [Concomitant]

REACTIONS (7)
  - Bladder cancer [None]
  - Insomnia [None]
  - Bladder pain [None]
  - Loss of libido [None]
  - Fluid retention [None]
  - Anxiety [None]
  - Heart rate abnormal [None]
